FAERS Safety Report 7332393-X (Version None)
Quarter: 2011Q1

REPORT INFORMATION
  Report Type: 
  Country: None (occurrence: None)
  Receive Date: 20110304
  Receipt Date: 20110303
  Transmission Date: 20110831
  Serious: Yes (Hospitalization)
  Sender: FDA-Public Use
  Company Number: B0703499A

PATIENT
  Sex: Female

DRUGS (15)
  1. KARDEGIC [Concomitant]
     Dosage: 75MG PER DAY
     Route: 065
  2. TEMESTA [Concomitant]
     Route: 065
  3. FORADIL [Concomitant]
     Route: 065
  4. ATARAX [Concomitant]
     Route: 065
  5. TIAPRIDAL [Suspect]
     Route: 048
     Dates: start: 20101226, end: 20110114
  6. FUROSEMIDE [Suspect]
     Route: 048
     Dates: start: 20101223, end: 20110115
  7. VASTAREL [Concomitant]
     Route: 065
  8. UVEDOSE [Concomitant]
     Route: 065
  9. ELISOR [Concomitant]
     Route: 065
  10. TRANSIPEG [Concomitant]
     Route: 065
  11. AUGMENTIN (ORAL) [Suspect]
     Route: 048
     Dates: start: 20101223, end: 20110110
  12. PULMICORT [Concomitant]
     Route: 065
  13. ENTOCORT EC [Concomitant]
     Route: 065
  14. DILTIAZEM HCL [Concomitant]
     Route: 065
  15. BONIVA [Concomitant]
     Route: 065

REACTIONS (3)
  - HYPERSENSITIVITY [None]
  - LEUKOPENIA [None]
  - AGRANULOCYTOSIS [None]
